FAERS Safety Report 8194006-7 (Version None)
Quarter: 2012Q1

REPORT INFORMATION
  Report Type: 
  Country: None (occurrence: None)
  Receive Date: 20120308
  Receipt Date: 20120227
  Transmission Date: 20120608
  Serious: No
  Sender: FDA-Public Use
  Company Number: US-B.I. PHARMACEUTICALS,INC./RIDGEFIELD-2012-BP-03765BP

PATIENT
  Sex: Female

DRUGS (1)
  1. PRADAXA [Suspect]
     Route: 048
     Dates: start: 20111201, end: 20111201

REACTIONS (1)
  - OESOPHAGEAL ULCER [None]
